FAERS Safety Report 6855894-7 (Version None)
Quarter: 2010Q3

REPORT INFORMATION
  Report Type: 
  Country: None (occurrence: None)
  Receive Date: 20100719
  Receipt Date: 20100708
  Transmission Date: 20110219
  Serious: Yes (Hospitalization)
  Sender: FDA-Public Use
  Company Number: IT-ASTRAZENECA-2010SE31872

PATIENT
  Age: 80 Year
  Sex: Female

DRUGS (1)
  1. TENORETIC 100 [Suspect]
     Indication: HYPERTENSION
     Dosage: 100/12.5 MG
     Route: 048
     Dates: start: 20080101, end: 20100702

REACTIONS (2)
  - GOUT [None]
  - HYPOKALAEMIA [None]
